FAERS Safety Report 22383535 (Version 1)
Quarter: 2023Q2

REPORT INFORMATION
  Report Type: Spontaneous
  Country: US (occurrence: US)
  Receive Date: 20230530
  Receipt Date: 20230530
  Transmission Date: 20230721
  Serious: Yes (Other)
  Sender: FDA-Public Use
  Company Number: US-TORRENT-00012694

PATIENT
  Age: 59 Year
  Sex: Male

DRUGS (6)
  1. CARBAMAZEPINE [Interacting]
     Active Substance: CARBAMAZEPINE
     Indication: Trigeminal neuralgia
     Dosage: UNKNOWN
     Route: 065
  2. DACLATASVIR [Interacting]
     Active Substance: DACLATASVIR
     Indication: Product used for unknown indication
     Dosage: UNKNOWN
     Route: 065
  3. EZETIMIBE [Interacting]
     Active Substance: EZETIMIBE
     Indication: Product used for unknown indication
     Route: 065
  4. GLECAPREVIR\PIBRENTASVIR [Interacting]
     Active Substance: GLECAPREVIR\PIBRENTASVIR
     Indication: Product used for unknown indication
     Dosage: UNKNOWN
     Route: 065
  5. RIBAVIRIN [Interacting]
     Active Substance: RIBAVIRIN
     Indication: Product used for unknown indication
     Dosage: UNKNOWN
     Route: 065
  6. SOFOSBUVIR [Interacting]
     Active Substance: SOFOSBUVIR
     Indication: Product used for unknown indication
     Dosage: UNKNOWN
     Route: 065

REACTIONS (4)
  - Drug interaction [Unknown]
  - Thrombocytopenia [Unknown]
  - Fibrosis [Unknown]
  - Condition aggravated [Unknown]
